FAERS Safety Report 6588635-1 (Version None)
Quarter: 2010Q1

REPORT INFORMATION
  Report Type: 
  Country: None (occurrence: None)
  Receive Date: 20100218
  Receipt Date: 20091123
  Transmission Date: 20100710
  Serious: No
  Sender: FDA-Public Use
  Company Number: US-ALLERGAN-0916299US

PATIENT
  Age: 49 Year
  Sex: Female

DRUGS (6)
  1. BOTOX COSMETIC [Suspect]
     Indication: SKIN WRINKLING
     Dosage: 68 UNITS, SINGLE
     Route: 030
     Dates: start: 20091113, end: 20091113
  2. WELLBUTRIN [Concomitant]
  3. PREVACID [Concomitant]
  4. GLUCOPHAGE [Concomitant]
  5. GLUCOTROL [Concomitant]
  6. NEXIUM [Concomitant]

REACTIONS (1)
  - DROOLING [None]
